FAERS Safety Report 15394514 (Version 1)
Quarter: 2018Q3

REPORT INFORMATION
  Report Type: Spontaneous
  Country: US (occurrence: US)
  Receive Date: 20180918
  Receipt Date: 20180918
  Transmission Date: 20181010
  Serious: No
  Sender: FDA-Public Use
  Company Number: US-BIOGEN-2018BI00532064

PATIENT
  Sex: Female

DRUGS (1)
  1. AVONEX [Suspect]
     Active Substance: INTERFERON BETA-1A
     Indication: MULTIPLE SCLEROSIS
     Route: 065
     Dates: start: 20160115

REACTIONS (4)
  - Multiple sclerosis [Recovered/Resolved]
  - Nasopharyngitis [Not Recovered/Not Resolved]
  - Agitation [Recovered/Resolved]
  - Pyrexia [Recovered/Resolved]
